FAERS Safety Report 8586066-6 (Version None)
Quarter: 2012Q3

REPORT INFORMATION
  Report Type: 
  Country: None (occurrence: None)
  Receive Date: 20120810
  Receipt Date: 20120727
  Transmission Date: 20120928
  Serious: Yes (Hospitalization)
  Sender: FDA-Public Use
  Company Number: FR-ROCHE-1093724

PATIENT
  Sex: Female

DRUGS (5)
  1. COPEGUS [Suspect]
     Indication: HEPATITIS C
     Route: 048
     Dates: start: 20120117
  2. PEGASYS [Suspect]
     Route: 058
     Dates: end: 20120703
  3. METFORMIN HCL [Concomitant]
     Indication: DIABETES MELLITUS
  4. PEGASYS [Suspect]
     Indication: HEPATITIS C
     Route: 058
     Dates: start: 20120117
  5. COPEGUS [Suspect]
     Route: 048
     Dates: end: 20120703

REACTIONS (7)
  - ECCHYMOSIS [None]
  - RECTAL HAEMORRHAGE [None]
  - LEUKOPENIA [None]
  - GINGIVAL BLEEDING [None]
  - THROMBOCYTOPENIA [None]
  - ANAEMIA [None]
  - EPISTAXIS [None]
